FAERS Safety Report 23696950 (Version 2)
Quarter: 2024Q2

REPORT INFORMATION
  Report Type: Report from Study
  Country: US (occurrence: US)
  Receive Date: 20240402
  Receipt Date: 20240404
  Transmission Date: 20240715
  Serious: Yes (Life-Threatening, Hospitalization, Other)
  Sender: FDA-Public Use
  Company Number: US-JNJFOC-20240384897

PATIENT
  Age: 72 Year
  Sex: Female

DRUGS (7)
  1. SPRAVATO [Suspect]
     Active Substance: ESKETAMINE
     Indication: Depression
     Dosage: ^56 MG, 8 TOTAL DOSES^
     Dates: start: 20210316, end: 20210429
  2. SPRAVATO [Suspect]
     Active Substance: ESKETAMINE
     Dosage: ^84 MG, 152 TOTAL DOSES^
     Dates: start: 20210504, end: 20230711
  3. SPRAVATO [Suspect]
     Active Substance: ESKETAMINE
     Dosage: ^UNSPECIFIED DOSE, 1 TOTAL DOSE^
     Dates: start: 20230713, end: 20230713
  4. SPRAVATO [Suspect]
     Active Substance: ESKETAMINE
     Dosage: ^84 MG, 6 TOTAL DOSES^
     Dates: start: 20230718, end: 20230807
  5. SPRAVATO [Suspect]
     Active Substance: ESKETAMINE
     Dosage: ^UNSPECIFIED DOSE, 1 TOTAL DOSE^
     Dates: start: 20230810, end: 20230810
  6. SPRAVATO [Suspect]
     Active Substance: ESKETAMINE
     Dosage: ^84 MG, 36 TOTAL DOSES^
     Dates: start: 20230814, end: 20240318
  7. SPRAVATO [Suspect]
     Active Substance: ESKETAMINE
     Dosage: ^84 MG, 1 TOTAL DOSE^, RECENT DOSE
     Dates: start: 20240401, end: 20240401

REACTIONS (1)
  - Suicide attempt [Recovered/Resolved]

NARRATIVE: CASE EVENT DATE: 20240301
